FAERS Safety Report 15469399 (Version 1)
Quarter: 2018Q4

REPORT INFORMATION
  Report Type: Spontaneous
  Country: US (occurrence: US)
  Receive Date: 20181005
  Receipt Date: 20181005
  Transmission Date: 20190205
  Serious: Yes (Other)
  Sender: FDA-Public Use
  Company Number: US-IMPAX LABORATORIES, INC-2018-IPXL-03195

PATIENT
  Age: 56 Year
  Sex: Female

DRUGS (4)
  1. IMMUNOGLOBULIN (IVIG) [Suspect]
     Active Substance: HUMAN IMMUNOGLOBULIN G
     Indication: MYASTHENIA GRAVIS
     Dosage: UNK
     Route: 042
     Dates: start: 201404, end: 201607
  2. PYRIDOSTIGMINE BROMIDE. [Suspect]
     Active Substance: PYRIDOSTIGMINE BROMIDE
     Dosage: DOSE REDUCED TO 30%
     Route: 065
     Dates: start: 2015
  3. PYRIDOSTIGMINE BROMIDE. [Suspect]
     Active Substance: PYRIDOSTIGMINE BROMIDE
     Indication: MYASTHENIA GRAVIS
     Dosage: UNK
     Route: 065
     Dates: start: 2013
  4. PREDNISONE. [Suspect]
     Active Substance: PREDNISONE
     Indication: MYASTHENIA GRAVIS
     Dosage: UNK
     Route: 065
     Dates: start: 201309, end: 201412

REACTIONS (6)
  - Splenic lesion [Recovering/Resolving]
  - Thymoma [Unknown]
  - Haematuria [Unknown]
  - Bronchopulmonary aspergillosis [Recovered/Resolved]
  - Gallbladder polyp [Recovered/Resolved]
  - Pyelocaliectasis [Unknown]

NARRATIVE: CASE EVENT DATE: 2013
